FAERS Safety Report 23585336 (Version 1)
Quarter: 2024Q1

REPORT INFORMATION
  Report Type: Spontaneous
  Country: US (occurrence: None)
  Receive Date: 20240229
  Receipt Date: 20240229
  Transmission Date: 20240410
  Serious: Yes (Other)
  Sender: FDA-Public Use
  Company Number: None

PATIENT
  Age: 30 Year
  Sex: Male
  Weight: 30.96 kg

DRUGS (2)
  1. HALOPERIDOL [Suspect]
     Active Substance: HALOPERIDOL
     Indication: Schizoaffective disorder bipolar type
     Dosage: FREQUENCY : TWICE A DAY;?
     Route: 048
     Dates: start: 20231222, end: 20240108
  2. hydrocortisone 1% ointment [Concomitant]

REACTIONS (5)
  - Stiff leg syndrome [None]
  - Gait disturbance [None]
  - Bradykinesia [None]
  - Treatment failure [None]
  - Therapy cessation [None]

NARRATIVE: CASE EVENT DATE: 20231231
